FAERS Safety Report 7451374-9 (Version None)
Quarter: 2011Q2

REPORT INFORMATION
  Report Type: 
  Country: None (occurrence: None)
  Receive Date: 20110422
  Receipt Date: 20110407
  Transmission Date: 20111010
  Serious: Yes (Death, Hospitalization)
  Sender: FDA-Public Use
  Company Number: 2011001632

PATIENT
  Age: 85 Year
  Sex: Female

DRUGS (1)
  1. TARCEVA [Suspect]
     Indication: LUNG ADENOCARCINOMA STAGE IV
     Dosage: (100 MG,QD),ORAL
     Route: 048
     Dates: start: 20100901, end: 20101201

REACTIONS (4)
  - PNEUMONITIS [None]
  - MALAISE [None]
  - SEPTIC SHOCK [None]
  - ORTHOSTATIC HYPOTENSION [None]
